FAERS Safety Report 12241530 (Version 3)
Quarter: 2016Q2

REPORT INFORMATION
  Report Type: Report from Study
  Country: IT (occurrence: IT)
  Receive Date: 20160406
  Receipt Date: 20160428
  Transmission Date: 20160815
  Serious: Yes (Life-Threatening, Hospitalization)
  Sender: FDA-Public Use
  Company Number: IT-BAYER-2016-064765

PATIENT
  Age: 52 Year
  Sex: Female
  Weight: 74 kg

DRUGS (6)
  1. DEXAMETHASONE. [Concomitant]
     Active Substance: DEXAMETHASONE
     Dosage: DAILY DOSE 2 MG
     Dates: start: 20160309
  2. REGORAFENIB [Suspect]
     Active Substance: REGORAFENIB
     Indication: GLIOBLASTOMA
     Dosage: DAILY DOSE 160 MG
     Route: 048
     Dates: start: 20151216, end: 20160330
  3. CIPRALEX [Concomitant]
     Active Substance: ESCITALOPRAM OXALATE
     Dosage: DAILY DOSE 10 GTT
     Dates: start: 20160202
  4. KEPPRA [Concomitant]
     Active Substance: LEVETIRACETAM
     Dosage: DAILY DOSE 150 MG
     Dates: start: 20151204
  5. XANAX [Concomitant]
     Active Substance: ALPRAZOLAM
     Dosage: DAILY DOSE 5 GTT
     Dates: start: 20160202
  6. DEXAMETHASONE. [Concomitant]
     Active Substance: DEXAMETHASONE
     Dosage: DAILY DOSE 4 MG
     Dates: start: 20151211

REACTIONS (2)
  - Peritonitis [Recovered/Resolved]
  - Large intestine perforation [Recovered/Resolved]

NARRATIVE: CASE EVENT DATE: 20160402
